FAERS Safety Report 10729197 (Version 1)
Quarter: 2015Q1

REPORT INFORMATION
  Report Type: Spontaneous
  Country: US (occurrence: None)
  Receive Date: 20150120
  Receipt Date: 20150120
  Transmission Date: 20150721
  Serious: Yes (Other)
  Sender: FDA-Public Use
  Company Number: None

PATIENT
  Age: 41 Year
  Sex: Female
  Weight: 88.45 kg

DRUGS (2)
  1. CELEXA [Suspect]
     Active Substance: CITALOPRAM HYDROBROMIDE
     Indication: DEPRESSION
     Dosage: 1 CAPSULE DAILY ONCE DAILY TAKEN BY MOUTH
     Route: 048
     Dates: start: 20150115, end: 20150119
  2. CELEXA [Suspect]
     Active Substance: CITALOPRAM HYDROBROMIDE
     Indication: ANXIETY
     Dosage: 1 CAPSULE DAILY ONCE DAILY TAKEN BY MOUTH
     Route: 048
     Dates: start: 20150115, end: 20150119

REACTIONS (6)
  - Pruritus [None]
  - Skin disorder [None]
  - Dyspnoea [None]
  - Hyperhidrosis [None]
  - Erythema [None]
  - Chest pain [None]

NARRATIVE: CASE EVENT DATE: 20150115
